FAERS Safety Report 21566037 (Version 1)
Quarter: 2022Q4

REPORT INFORMATION
  Report Type: Report from Study
  Country: CA (occurrence: CA)
  Receive Date: 20221108
  Receipt Date: 20221108
  Transmission Date: 20230113
  Serious: Yes (Hospitalization)
  Sender: FDA-Public Use
  Company Number: CA-TAKEDA-2022TUS061231

PATIENT
  Age: 62 Year
  Sex: Male

DRUGS (3)
  1. VEDOLIZUMAB [Suspect]
     Active Substance: VEDOLIZUMAB
     Indication: Colitis ulcerative
     Dosage: 300 MILLIGRAM
     Route: 042
     Dates: start: 20211213
  2. VEDOLIZUMAB [Suspect]
     Active Substance: VEDOLIZUMAB
     Dosage: 300 MILLIGRAM
     Route: 042
     Dates: start: 20211213
  3. MESALAMINE [Concomitant]
     Active Substance: MESALAMINE
     Dosage: 600 MILLIGRAM
     Route: 048
     Dates: start: 20220117

REACTIONS (3)
  - Gastrooesophageal reflux disease [Recovered/Resolved]
  - Hyperchlorhydria [Recovered/Resolved]
  - Weight decreased [Unknown]
